FAERS Safety Report 10048908 (Version 1)
Quarter: 2014Q1

REPORT INFORMATION
  Report Type: Spontaneous
  Country: DE (occurrence: DE)
  Receive Date: 20140331
  Receipt Date: 20140331
  Transmission Date: 20141002
  Serious: Yes (Hospitalization)
  Sender: FDA-Public Use
  Company Number: DE-WATSON-2013-25111

PATIENT
  Age: 68 Year
  Sex: Male
  Weight: 89 kg

DRUGS (2)
  1. METOPROLOL (UNKNOWN) [Suspect]
     Indication: HYPERTENSION
     Route: 048
     Dates: start: 200810, end: 200907
  2. METOPROLOL (UNKNOWN) [Suspect]
     Route: 048
     Dates: start: 201211, end: 201304

REACTIONS (2)
  - Alveolitis [Recovering/Resolving]
  - Organising pneumonia [Recovering/Resolving]
